FAERS Safety Report 6032542-X (Version None)
Quarter: 2009Q1

REPORT INFORMATION
  Report Type: 
  Country: None (occurrence: None)
  Receive Date: 20090109
  Receipt Date: 20081210
  Transmission Date: 20090719
  Serious: No
  Sender: FDA-Public Use
  Company Number: A0759737A

PATIENT
  Age: 62 Year
  Sex: Female

DRUGS (3)
  1. TYKERB [Suspect]
     Indication: BREAST CANCER
     Dosage: 1250MG PER DAY
     Route: 048
  2. METHOTREXATE [Concomitant]
     Route: 042
  3. HERCEPTIN [Concomitant]
     Route: 042

REACTIONS (1)
  - DIARRHOEA [None]
